APPROVED DRUG PRODUCT: LUVOX
Active Ingredient: FLUVOXAMINE MALEATE
Strength: 100MG
Dosage Form/Route: TABLET;ORAL
Application: N021519 | Product #003 | TE Code: AB
Applicant: ANI PHARMACEUTICALS INC
Approved: Dec 20, 2007 | RLD: Yes | RS: No | Type: RX